FAERS Safety Report 20240214 (Version 11)
Quarter: 2022Q1

REPORT INFORMATION
  Report Type: Report from Study
  Country: SE (occurrence: None)
  Receive Date: 20211228
  Receipt Date: 20220329
  Transmission Date: 20220424
  Serious: Yes (Hospitalization)
  Sender: FDA-Public Use
  Company Number: SE-Eisai Medical Research-EC-2021-105704

PATIENT
  Age: 66 Year
  Sex: Male
  Weight: 80.4 kg

DRUGS (3)
  1. LENVATINIB [Suspect]
     Active Substance: LENVATINIB
     Indication: Clear cell renal cell carcinoma
     Dosage: STARTING DOSE AT 20 MG, FLUCTUATED DOSAGE
     Route: 048
     Dates: start: 20211208
  2. PEMBROLIZUMAB [Suspect]
     Active Substance: PEMBROLIZUMAB
     Indication: Clear cell renal cell carcinoma
     Dosage: MK-1308A QUAVONLIMAB 25 MG (+) PEMBROLIZUMAB 400 MG, EVERY 6 WEEKS
     Route: 042
     Dates: start: 20211208, end: 20211208
  3. QUAVONLIMAB [Suspect]
     Active Substance: QUAVONLIMAB
     Dosage: MK-1308A QUAVONLIMAB 25 MG (+) PEMBROLIZUMAB 400 MG, EVERY 6 WEEKS
     Route: 042
     Dates: start: 20220121

REACTIONS (2)
  - Pyrexia [Recovered/Resolved]
  - Arthralgia [Recovering/Resolving]

NARRATIVE: CASE EVENT DATE: 20211218
